FAERS Safety Report 4288698-2 (Version None)
Quarter: 2004Q1

REPORT INFORMATION
  Report Type: 
  Country: None (occurrence: None)
  Receive Date: 20040205
  Receipt Date: 20040119
  Transmission Date: 20041129
  Serious: Yes (Life-Threatening, Hospitalization)
  Sender: FDA-Public Use
  Company Number: EWC021032685

PATIENT
  Age: 54 Year
  Sex: Male
  Weight: 69 kg

DRUGS (19)
  1. HUMATROPE [Suspect]
     Indication: GROWTH HORMONE DEFICIENCY
     Dosage: 0.5 MG/DAY
     Dates: start: 20000821
  2. ALENDRONATE SODIUM [Concomitant]
  3. THYROXINE [Concomitant]
  4. HYDROCORTISONE [Concomitant]
  5. LEVETIRACETAM [Concomitant]
  6. SULFASALAZINE [Concomitant]
  7. FUROSEMIDE [Concomitant]
  8. TESTOSTERONE [Concomitant]
  9. VITAMIN D3 [Concomitant]
  10. COLESTYRAMINE [Concomitant]
  11. LORMETAZEPAM [Concomitant]
  12. MULTIVITAMINS AND MINERAL SUPPLEMENT [Concomitant]
  13. LEVOTHYROXINE SODIUM [Concomitant]
  14. STEOVIT [Concomitant]
  15. OMNIBIONTA [Concomitant]
  16. VITAMIN A AND D [Concomitant]
  17. MULTIVITAMIN AND MINERAL SUPPLEMENT [Concomitant]
  18. SUSTANON [Concomitant]
  19. OMNIBIONTA [Concomitant]

REACTIONS (5)
  - CUBITAL TUNNEL SYNDROME [None]
  - DISEASE RECURRENCE [None]
  - INTESTINAL OBSTRUCTION [None]
  - OLIGODENDROGLIOMA [None]
  - STATUS EPILEPTICUS [None]
